FAERS Safety Report 9675145 (Version 1)
Quarter: 2013Q4

REPORT INFORMATION
  Report Type: Spontaneous
  Country: US (occurrence: None)
  Receive Date: 20131105
  Receipt Date: 20131105
  Transmission Date: 20140711
  Serious: Yes (Death)
  Sender: FDA-Public Use
  Company Number: CC400197739

PATIENT
  Age: 6 Year
  Sex: 0

DRUGS (2)
  1. 5% DEXTROSE [Suspect]
     Indication: FLUID REPLACEMENT
     Dosage: 200 ML/HR; IV
     Route: 042
  2. 5% DEXTROSE [Suspect]
     Indication: POSTOPERATIVE CARE
     Dosage: 200 ML/HR; IV
     Route: 042

REACTIONS (9)
  - Hyponatraemia [None]
  - Water intoxication [None]
  - Incorrect drug administration rate [None]
  - Haematemesis [None]
  - Lethargy [None]
  - Slow response to stimuli [None]
  - Bradycardia [None]
  - Grand mal convulsion [None]
  - Brain oedema [None]
